FAERS Safety Report 5604758-5 (Version None)
Quarter: 2008Q1

REPORT INFORMATION
  Report Type: 
  Country: None (occurrence: None)
  Receive Date: 20080128
  Receipt Date: 20080122
  Transmission Date: 20080703
  Serious: Yes (Hospitalization, Other)
  Sender: FDA-Public Use
  Company Number: PHBS2007JP20560

PATIENT
  Age: 44 Year
  Sex: Female
  Weight: 54 kg

DRUGS (6)
  1. TEGRETOL [Suspect]
     Indication: TONIC CONVULSION
     Dosage: UNK, UNK
     Route: 048
     Dates: start: 19930101
  2. TEGRETOL [Suspect]
     Dosage: 800 MG/DAY
     Route: 048
     Dates: end: 20070912
  3. SELENICA-R [Concomitant]
     Indication: TONIC CONVULSION
     Dosage: 1320 MG/DAY
     Route: 048
  4. CLONAZEPAM [Concomitant]
     Indication: TONIC CONVULSION
     Dosage: 1 MG/DAY
     Route: 048
  5. MYSTAN AZWELL [Concomitant]
     Indication: TONIC CONVULSION
     Dosage: 20 MG/DAY
     Route: 048
  6. METLIGINE [Concomitant]
     Indication: HYPOTENSION
     Dosage: 4 MG/DAY
     Route: 048

REACTIONS (7)
  - ANTICONVULSANT DRUG LEVEL ABOVE THERAPEUTIC [None]
  - ASTERIXIS [None]
  - DYSKINESIA [None]
  - EPILEPSY [None]
  - FALL [None]
  - MUSCULAR WEAKNESS [None]
  - SPINAL COMPRESSION FRACTURE [None]
